FAERS Safety Report 7986411-6 (Version None)
Quarter: 2011Q4

REPORT INFORMATION
  Report Type: 
  Country: None (occurrence: None)
  Receive Date: 20111216
  Receipt Date: 20111016
  Transmission Date: 20120403
  Serious: No
  Sender: FDA-Public Use
  Company Number: US-GLAXOSMITHKLINE-A0949618A

PATIENT
  Sex: Female

DRUGS (3)
  1. COREG CR [Suspect]
     Dosage: 40MG UNKNOWN
     Route: 065
  2. LOSARTAN POTASSIUM [Concomitant]
  3. COREG CR [Suspect]
     Indication: HYPERTENSION
     Dosage: 20MG UNKNOWN
     Route: 065

REACTIONS (6)
  - DIZZINESS [None]
  - DRUG INEFFECTIVE [None]
  - LETHARGY [None]
  - PARAESTHESIA [None]
  - ADVERSE DRUG REACTION [None]
  - FATIGUE [None]
